FAERS Safety Report 11189641 (Version 1)
Quarter: 2015Q2

REPORT INFORMATION
  Report Type: Report from Study
  Country: US (occurrence: None)
  Receive Date: 20150603
  Receipt Date: 20150603
  Transmission Date: 20150821
  Serious: No
  Sender: FDA-Public Use
  Company Number: 2015TASUS000745

PATIENT
  Age: 41 Year
  Sex: Male

DRUGS (6)
  1. PAROXETINE HCL (PAROXETINE HYDROCHLORIDE) [Concomitant]
  2. VENLAFAXINE [Concomitant]
     Active Substance: VENLAFAXINE HYDROCHLORIDE
  3. MONTELUKAST  (MONTELUKAST SODIUM) [Concomitant]
  4. HETLIOZ [Suspect]
     Active Substance: TASIMELTEON
     Indication: CIRCADIAN RHYTHM SLEEP DISORDER
     Dates: start: 20150106
  5. CLONAZEPAM. [Concomitant]
     Active Substance: CLONAZEPAM
  6. TOPIRAMATE. [Concomitant]
     Active Substance: TOPIRAMATE

REACTIONS (3)
  - Somnolence [None]
  - Fatigue [None]
  - Headache [None]

NARRATIVE: CASE EVENT DATE: 201501
